FAERS Safety Report 8515816-X (Version None)
Quarter: 2012Q3

REPORT INFORMATION
  Report Type: 
  Country: None (occurrence: None)
  Receive Date: 20120717
  Receipt Date: 20120711
  Transmission Date: 20120928
  Serious: Yes (Hospitalization)
  Sender: FDA-Public Use
  Company Number: DE-JNJFOC-20120705434

PATIENT
  Age: 18 Year
  Sex: Male

DRUGS (1)
  1. PROPULSIN [Suspect]
     Indication: GASTROOESOPHAGEAL REFLUX DISEASE
     Dosage: MAXIMUM PERMISSIBLE DOSE, INITIATED ON AN UNSPECIFIED DATE IN THE AGE OF 3 TO 6 YEARS
     Route: 065

REACTIONS (2)
  - HEPATIC CIRRHOSIS [None]
  - MUSCULAR DYSTROPHY [None]
